FAERS Safety Report 5019923-8 (Version None)
Quarter: 2006Q2

REPORT INFORMATION
  Report Type: 
  Country: None (occurrence: None)
  Receive Date: 20060605
  Receipt Date: 20060605
  Transmission Date: 20061013
  Serious: Yes (Other)
  Sender: FDA-Public Use
  Company Number: None

PATIENT
  Age: 44 Year
  Sex: Female
  Weight: 72.5755 kg

DRUGS (1)
  1. DURAGESIC-100 [Suspect]
     Indication: PANCREATITIS CHRONIC
     Dosage: 100 MICROGRAMS  72 HOURS  IM
     Route: 030
     Dates: start: 20060529, end: 20060530

REACTIONS (7)
  - BLOOD PRESSURE ABNORMAL [None]
  - BLOOD PRESSURE INCREASED [None]
  - HEADACHE [None]
  - INCORRECT DRUG ADMINISTRATION DURATION [None]
  - MEDICATION ERROR [None]
  - MOBILITY DECREASED [None]
  - VOMITING [None]
